FAERS Safety Report 13341771 (Version 2)
Quarter: 2018Q2

REPORT INFORMATION
  Report Type: Spontaneous
  Country: US (occurrence: US)
  Receive Date: 20170316
  Receipt Date: 20180403
  Transmission Date: 20180711
  Serious: No
  Sender: FDA-Public Use
  Company Number: US-ROCHE-1877233

PATIENT
  Sex: Male

DRUGS (1)
  1. ERIVEDGE [Suspect]
     Active Substance: VISMODEGIB
     Indication: BASAL CELL CARCINOMA
     Route: 048
     Dates: start: 201611

REACTIONS (5)
  - Immunodeficiency [Unknown]
  - Sleep disorder [Recovering/Resolving]
  - Pneumonia [Not Recovered/Not Resolved]
  - Muscle spasms [Recovering/Resolving]
  - Cough [Unknown]
